FAERS Safety Report 8175156-8 (Version None)
Quarter: 2012Q1

REPORT INFORMATION
  Report Type: 
  Country: None (occurrence: None)
  Receive Date: 20120229
  Receipt Date: 20120224
  Transmission Date: 20120608
  Serious: Yes (Other)
  Sender: FDA-Public Use
  Company Number: GXKR2012DE000933

PATIENT

DRUGS (4)
  1. FLUTICASONE PROPIONATE [Concomitant]
     Route: 055
  2. CETIRIZINE [Suspect]
     Route: 048
  3. SINGULAIR [Suspect]
     Route: 048
  4. ALBUTEROL [Concomitant]
     Route: 055

REACTIONS (1)
  - TYPE 1 DIABETES MELLITUS [None]
